FAERS Safety Report 4714856-6 (Version None)
Quarter: 2005Q3

REPORT INFORMATION
  Report Type: 
  Country: None (occurrence: None)
  Receive Date: 20050715
  Receipt Date: 20050506
  Transmission Date: 20060218
  Serious: Yes (Hospitalization)
  Sender: FDA-Public Use
  Company Number: US-BRISTOL-MYERS SQUIBB COMPANY-12959771

PATIENT
  Age: 70 Year
  Sex: Male

DRUGS (21)
  1. CETUXIMAB [Suspect]
     Indication: LUNG CANCER METASTATIC
     Route: 042
     Dates: start: 20050428, end: 20050428
  2. CARBOPLATIN [Suspect]
     Indication: LUNG CANCER METASTATIC
     Route: 042
     Dates: start: 20050428, end: 20050428
  3. DOCETAXEL [Suspect]
     Indication: LUNG CANCER METASTATIC
     Route: 042
     Dates: start: 20050428, end: 20050428
  4. ALOXI [Concomitant]
     Dates: start: 20050428, end: 20050428
  5. DECADRON [Concomitant]
     Dates: start: 20050428, end: 20050428
  6. DIOVAN [Concomitant]
     Dates: start: 19850101
  7. DIPHENHYDRAMINE HCL [Concomitant]
     Dates: start: 20050428, end: 20050428
  8. ISOSORBIDE [Concomitant]
     Dates: start: 19850101
  9. K-TAB [Concomitant]
     Dates: start: 20010101
  10. LASIX [Concomitant]
     Dates: start: 20010101
  11. LIPITOR [Concomitant]
     Dates: start: 20010101
  12. MONOPRIL [Concomitant]
     Dates: start: 19850101
  13. NEUPOGEN [Concomitant]
     Dates: start: 20050429
  14. PROCARDIA XL [Concomitant]
     Dates: start: 19850101
  15. TAGAMET [Concomitant]
     Dates: start: 20050428, end: 20050428
  16. ZANTAC [Concomitant]
     Dates: start: 20050503
  17. REGULAR INSULIN [Concomitant]
     Dates: start: 20050503
  18. NORMAL SALINE [Concomitant]
     Dates: start: 20050504, end: 20050504
  19. NOVOLIN R [Concomitant]
     Dates: start: 20050505, end: 20050511
  20. REGLAN [Concomitant]
     Dates: start: 20050505, end: 20050511
  21. HEPARIN [Concomitant]
     Dates: start: 20050505, end: 20050511

REACTIONS (1)
  - SEPSIS [None]
